FAERS Safety Report 4317716-8 (Version None)
Quarter: 2004Q1

REPORT INFORMATION
  Report Type: 
  Country: None (occurrence: None)
  Receive Date: 20040315
  Receipt Date: 20040301
  Transmission Date: 20041129
  Serious: Yes (Other)
  Sender: FDA-Public Use
  Company Number: PHEH2004US02602

PATIENT
  Age: 71 Year
  Sex: Male

DRUGS (7)
  1. LAMISIL [Suspect]
     Indication: NAIL TINEA
     Dosage: 250 MG, BID
     Route: 048
     Dates: start: 20030601, end: 20030901
  2. LIPITOR [Concomitant]
  3. ENALAPRIL MALEATE [Concomitant]
  4. METOPROLOL [Concomitant]
  5. ASPIRIN [Concomitant]
  6. ACTOS ^LILLY^ [Concomitant]
  7. INSULIN [Concomitant]

REACTIONS (5)
  - ANTIBODY TEST POSITIVE [None]
  - ANTINUCLEAR ANTIBODY POSITIVE [None]
  - RASH [None]
  - SJOGREN'S SYNDROME [None]
  - SYSTEMIC LUPUS ERYTHEMATOSUS [None]
